FAERS Safety Report 19875200 (Version 2)
Quarter: 2021Q3

REPORT INFORMATION
  Report Type: Spontaneous
  Country: AU (occurrence: AU)
  Receive Date: 20210923
  Receipt Date: 20210929
  Transmission Date: 20211014
  Serious: Yes (Other)
  Sender: FDA-Public Use
  Company Number: AU-ALLERGAN-2132911US

PATIENT
  Sex: Female

DRUGS (4)
  1. ETOPOSIDE. [Suspect]
     Active Substance: ETOPOSIDE
     Indication: PRODUCT USED FOR UNKNOWN INDICATION
  2. GEMCITABINE. [Suspect]
     Active Substance: GEMCITABINE
     Indication: PRODUCT USED FOR UNKNOWN INDICATION
  3. METHOTREXATE. [Suspect]
     Active Substance: METHOTREXATE
     Indication: PRODUCT USED FOR UNKNOWN INDICATION
  4. DEX UNK (DEXAMETHASONE) [Suspect]
     Active Substance: DEXAMETHASONE
     Indication: PRODUCT USED FOR UNKNOWN INDICATION

REACTIONS (17)
  - Abdominal pain upper [Unknown]
  - Small intestinal obstruction [Unknown]
  - Lymphadenopathy [Unknown]
  - Syncope [Unknown]
  - Diffuse large B-cell lymphoma refractory [Unknown]
  - Gastrointestinal haemorrhage [Unknown]
  - Skin ulcer [Unknown]
  - Gastric perforation [Unknown]
  - Cholecystitis acute [Unknown]
  - Follicular lymphoma stage III [Unknown]
  - Cytopenia [Unknown]
  - Salivary gland mass [Unknown]
  - Superior vena cava occlusion [Unknown]
  - Malnutrition [Unknown]
  - Orthostatic hypotension [Unknown]
  - Peripancreatic varices [Unknown]
  - Pulmonary embolism [Unknown]
